FAERS Safety Report 7574567-9 (Version None)
Quarter: 2011Q2

REPORT INFORMATION
  Report Type: 
  Country: None (occurrence: None)
  Receive Date: 20110627
  Receipt Date: 20110613
  Transmission Date: 20111010
  Serious: Yes (Other)
  Sender: FDA-Public Use
  Company Number: PHHY2011ZA56154

PATIENT
  Age: 20 Year
  Sex: Male

DRUGS (3)
  1. TOPIRAMATE [Suspect]
     Indication: EPILEPSY
     Dosage: 50 MG, BID
     Route: 048
     Dates: start: 19960101
  2. CARBAMAZEPINE [Suspect]
     Indication: EPILEPSY
     Dosage: 400 MG, BID
     Route: 048
     Dates: start: 19960101
  3. VALPROATE SODIUM [Suspect]
     Indication: EPILEPSY
     Dosage: 2500 MG, DAILY
     Route: 048
     Dates: start: 19960101

REACTIONS (3)
  - ABNORMAL BEHAVIOUR [None]
  - IMPULSE-CONTROL DISORDER [None]
  - AGGRESSION [None]
